FAERS Safety Report 26071336 (Version 1)
Quarter: 2025Q4

REPORT INFORMATION
  Report Type: Spontaneous
  Country: EU (occurrence: EU)
  Receive Date: 20251120
  Receipt Date: 20251120
  Transmission Date: 20260118
  Serious: Yes (Hospitalization, Other)
  Sender: TEVA
  Company Number: EU-TEVA-VS-3393056

PATIENT
  Age: 53 Year
  Sex: Female

DRUGS (6)
  1. MYCOPHENOLATE MOFETIL [Suspect]
     Active Substance: MYCOPHENOLATE MOFETIL
     Indication: Cardiac disorder
     Route: 048
  2. BOSENTAN [Concomitant]
     Active Substance: BOSENTAN
     Indication: Cardiac disorder
     Route: 065
  3. RITUXIMAB [Suspect]
     Active Substance: RITUXIMAB
     Indication: Cardiac disorder
     Route: 065
  4. CYCLOPHOSPHAMIDE [Suspect]
     Active Substance: CYCLOPHOSPHAMIDE
     Indication: Cardiac disorder
     Route: 042
  5. NINTEDANIB [Concomitant]
     Active Substance: NINTEDANIB
     Indication: Cardiac disorder
     Route: 065
  6. ILOPROST [Concomitant]
     Active Substance: ILOPROST
     Indication: Systemic scleroderma
     Route: 065

REACTIONS (3)
  - Drug ineffective [Unknown]
  - COVID-19 [Unknown]
  - Pneumonia [Unknown]
